FAERS Safety Report 13711763 (Version 1)
Quarter: 2017Q3

REPORT INFORMATION
  Report Type: Spontaneous
  Country: CA (occurrence: CA)
  Receive Date: 20170703
  Receipt Date: 20170703
  Transmission Date: 20171127
  Serious: Yes (Hospitalization)
  Sender: FDA-Public Use
  Company Number: CA-SA-2017SA111194

PATIENT
  Sex: Female

DRUGS (3)
  1. APIDRA [Suspect]
     Active Substance: INSULIN GLULISINE
     Indication: TYPE 2 DIABETES MELLITUS
     Dosage: DOSE:14 UNIT(S)
     Route: 058
     Dates: start: 20170510
  2. ACTRAPID [Suspect]
     Active Substance: INSULIN HUMAN
     Route: 065
  3. INSULATARD NPH HUMAN [Suspect]
     Active Substance: INSULIN HUMAN
     Indication: TYPE 2 DIABETES MELLITUS
     Dosage: SUSPENSION FOR INJECTION DOSE:26 UNIT(S)
     Route: 065
     Dates: start: 20170510

REACTIONS (4)
  - Diabetes mellitus inadequate control [Unknown]
  - Myocardial infarction [Not Recovered/Not Resolved]
  - Glycosylated haemoglobin increased [Unknown]
  - Pneumonia [Not Recovered/Not Resolved]

NARRATIVE: CASE EVENT DATE: 201705
